FAERS Safety Report 12260745 (Version 1)
Quarter: 2016Q2

REPORT INFORMATION
  Report Type: Spontaneous
  Country: JP (occurrence: JP)
  Receive Date: 20160412
  Receipt Date: 20160412
  Transmission Date: 20160815
  Serious: Yes (Hospitalization, Other)
  Sender: FDA-Public Use
  Company Number: JP-REGENERON PHARMACEUTICALS, INC.-2016-11217

PATIENT

DRUGS (7)
  1. EYLEA [Suspect]
     Active Substance: AFLIBERCEPT
     Dosage: 2 ML, ONCE
     Route: 031
     Dates: start: 20150213, end: 20150213
  2. EYLEA [Suspect]
     Active Substance: AFLIBERCEPT
     Dosage: 2 ML, ONCE
     Route: 031
     Dates: start: 20150311, end: 20150311
  3. EYLEA [Suspect]
     Active Substance: AFLIBERCEPT
     Indication: NEOVASCULAR AGE-RELATED MACULAR DEGENERATION
     Dosage: 2 ML, ONCE
     Route: 031
     Dates: start: 20150116, end: 20150116
  4. EYLEA [Suspect]
     Active Substance: AFLIBERCEPT
     Dosage: 2 ML, ONCE
     Route: 031
     Dates: start: 20151127, end: 20151127
  5. EYLEA [Suspect]
     Active Substance: AFLIBERCEPT
     Dosage: 2 ML, ONCE
     Dates: start: 20151002, end: 20151002
  6. EYLEA [Suspect]
     Active Substance: AFLIBERCEPT
     Dosage: 2 ML, ONCE
     Route: 031
     Dates: start: 20150515, end: 20150515
  7. EYLEA [Suspect]
     Active Substance: AFLIBERCEPT
     Dosage: 2 ML, ONCE
     Route: 031
     Dates: start: 20150807, end: 20150807

REACTIONS (1)
  - Angina pectoris [Recovering/Resolving]

NARRATIVE: CASE EVENT DATE: 20160113
